FAERS Safety Report 5778267-7 (Version None)
Quarter: 2008Q2

REPORT INFORMATION
  Report Type: 
  Country: None (occurrence: None)
  Receive Date: 20080619
  Receipt Date: 20080617
  Transmission Date: 20081010
  Serious: Yes (Other)
  Sender: FDA-Public Use
  Company Number: US-RANBAXY-2008US-15065

PATIENT

DRUGS (3)
  1. ISOTRETINOIN [Suspect]
     Indication: ACNE CYSTIC
     Dosage: 40 MG, UNK
     Route: 048
     Dates: start: 20080401, end: 20080513
  2. ZYRTEC [Suspect]
     Indication: DRUG USE FOR UNKNOWN INDICATION
  3. CELEXA [Suspect]
     Indication: DRUG USE FOR UNKNOWN INDICATION
     Dosage: UNK
     Dates: start: 20080408

REACTIONS (1)
  - SUICIDE ATTEMPT [None]
